FAERS Safety Report 22119311 (Version 1)
Quarter: 2023Q1

REPORT INFORMATION
  Report Type: Other
  Country: IN (occurrence: None)
  Receive Date: 20230321
  Receipt Date: 20230321
  Transmission Date: 20230418
  Serious: Yes (Death)
  Sender: FDA-Public Use
  Company Number: IN-ROCHE-3254742

PATIENT
  Age: 74 Year
  Sex: Male

DRUGS (1)
  1. TECENTRIQ [Suspect]
     Active Substance: ATEZOLIZUMAB
     Indication: Lung adenocarcinoma
     Route: 042
     Dates: start: 20221130

REACTIONS (4)
  - Fatigue [Unknown]
  - Back pain [Unknown]
  - Malaise [Unknown]
  - Cortisol decreased [Fatal]

NARRATIVE: CASE EVENT DATE: 20230224
